FAERS Safety Report 12999862 (Version 1)
Quarter: 2016Q4

REPORT INFORMATION
  Report Type: Spontaneous
  Country: FR (occurrence: FR)
  Receive Date: 20161205
  Receipt Date: 20161205
  Transmission Date: 20170207
  Serious: Yes (Other)
  Sender: FDA-Public Use
  Company Number: FR-ELI_LILLY_AND_COMPANY-FR201611008985

PATIENT
  Age: 88 Year
  Sex: Female

DRUGS (2)
  1. TEMESTA                            /00273201/ [Concomitant]
     Active Substance: LORAZEPAM
     Indication: PRODUCT USED FOR UNKNOWN INDICATION
     Dosage: UNK UNK, QD
     Route: 065
  2. PROZAC [Suspect]
     Active Substance: FLUOXETINE HYDROCHLORIDE
     Indication: PRODUCT USED FOR UNKNOWN INDICATION
     Dosage: 20 MG, UNKNOWN
     Route: 065
     Dates: start: 1990, end: 20161109

REACTIONS (6)
  - Dementia Alzheimer^s type [Unknown]
  - Agitation [Unknown]
  - Memory impairment [Unknown]
  - Mental disorder [Unknown]
  - Cardiac failure [Unknown]
  - Anxiety [Unknown]

NARRATIVE: CASE EVENT DATE: 20161109
